FAERS Safety Report 6420982-6 (Version None)
Quarter: 2009Q4

REPORT INFORMATION
  Report Type: 
  Country: None (occurrence: None)
  Receive Date: 20091030
  Receipt Date: 20091023
  Transmission Date: 20100525
  Serious: Yes (Hospitalization)
  Sender: FDA-Public Use
  Company Number: FR-ASTRAZENECA-2009SE22534

PATIENT
  Sex: Male

DRUGS (1)
  1. FOSCAVIR [Suspect]
     Route: 042
     Dates: start: 20091014

REACTIONS (1)
  - RENAL FAILURE [None]
